FAERS Safety Report 15957334 (Version 4)
Quarter: 2019Q1

REPORT INFORMATION
  Report Type: Spontaneous
  Country: BR (occurrence: BR)
  Receive Date: 20190213
  Receipt Date: 20190320
  Transmission Date: 20190417
  Serious: Yes (Other)
  Sender: FDA-Public Use
  Company Number: BR-ALEXION PHARMACEUTICALS INC.-A201817046

PATIENT
  Age: 31 Year
  Sex: Female
  Weight: 52 kg

DRUGS (3)
  1. SOLIRIS [Suspect]
     Active Substance: ECULIZUMAB
     Dosage: 1200 MG, EVERY 15 DAYS
     Route: 065
     Dates: start: 20190214
  2. SOLIRIS [Suspect]
     Active Substance: ECULIZUMAB
     Indication: PAROXYSMAL NOCTURNAL HAEMOGLOBINURIA
     Dosage: 600 MG, QW
     Route: 065
     Dates: start: 20161123, end: 20161214
  3. SOLIRIS [Suspect]
     Active Substance: ECULIZUMAB
     Dosage: 900 MG, Q2W
     Route: 065
     Dates: start: 20161221

REACTIONS (13)
  - Red blood cell count decreased [Not Recovered/Not Resolved]
  - Condition aggravated [Unknown]
  - Platelet count decreased [Not Recovered/Not Resolved]
  - Haemoglobin decreased [Not Recovered/Not Resolved]
  - Bone marrow failure [Unknown]
  - Thrombocytopenia [Unknown]
  - Haemolysis [Unknown]
  - Headache [Recovering/Resolving]
  - Ear discomfort [Unknown]
  - Blindness [Unknown]
  - Incorrect dose administered [Not Recovered/Not Resolved]
  - Vision blurred [Unknown]
  - Exposure during pregnancy [Not Recovered/Not Resolved]

NARRATIVE: CASE EVENT DATE: 2018
